FAERS Safety Report 6533559-9 (Version None)
Quarter: 2010Q1

REPORT INFORMATION
  Report Type: 
  Country: None (occurrence: None)
  Receive Date: 20100111
  Receipt Date: 20100104
  Transmission Date: 20100710
  Serious: Yes (Other)
  Sender: FDA-Public Use
  Company Number: US-ELI_LILLY_AND_COMPANY-2006PV020405

PATIENT
  Sex: Female
  Weight: 95.692 kg

DRUGS (12)
  1. EXENATIDE [Suspect]
     Indication: TYPE 2 DIABETES MELLITUS
     Dosage: 5 UG, 2/D
     Route: 058
     Dates: start: 20050801, end: 20051109
  2. EXENATIDE [Suspect]
     Dosage: 10 UG, 2/D
     Route: 058
     Dates: start: 20051109
  3. EXENATIDE [Suspect]
     Dosage: 10 UG, 2/D
     Route: 058
  4. GLUCOPHAGE XR [Concomitant]
     Indication: TYPE 2 DIABETES MELLITUS
     Dosage: UNK, 2/D
     Route: 048
     Dates: start: 20040101
  5. SYMLIN [Concomitant]
     Indication: TYPE 2 DIABETES MELLITUS
     Dosage: 10 UG, 2/D
     Route: 058
     Dates: end: 20060901
  6. SYNTHROID [Concomitant]
     Dosage: 50 UG, UNK
     Route: 048
     Dates: start: 20040101
  7. ZOCOR [Concomitant]
     Dosage: 20 MG, UNK
     Route: 048
     Dates: start: 20040101
  8. MOBIC [Concomitant]
     Indication: BACK PAIN
     Dosage: 15 MG, AS NEEDED
  9. FLEXERIL [Concomitant]
     Indication: BACK PAIN
     Dosage: 10 MG, AS NEEDED
  10. ZANAFLEX [Concomitant]
     Indication: BACK PAIN
     Dosage: 4 MG, UNK
  11. LYRICA [Concomitant]
     Dates: end: 20080101
  12. DYAZIDE [Concomitant]
     Indication: HYPERTENSION
     Route: 048
     Dates: start: 20040101

REACTIONS (4)
  - DEAFNESS [None]
  - HEARING IMPAIRED [None]
  - INJECTION SITE EXTRAVASATION [None]
  - INJECTION SITE HAEMATOMA [None]
